FAERS Safety Report 24340024 (Version 1)
Quarter: 2024Q3

REPORT INFORMATION
  Report Type: Spontaneous
  Country: US (occurrence: US)
  Receive Date: 20240919
  Receipt Date: 20240919
  Transmission Date: 20241016
  Serious: No
  Sender: PFIZER
  Company Number: US-PFIZER INC-PV202400083547

PATIENT
  Age: 73 Year
  Sex: Female

DRUGS (2)
  1. NURTEC ODT [Suspect]
     Active Substance: RIMEGEPANT SULFATE
     Indication: Migraine
     Dosage: 1 TABLET, 1X/DAY (ON THE TONGUE AND ALLOW TO DISSOLVE, ONCE A DAY 15 DAYS)
     Route: 048
  2. NURTEC ODT [Suspect]
     Active Substance: RIMEGEPANT SULFATE
     Dosage: 1 TABLET, AS NEEDED (ON THE TONGUE ONCE A DAY AS NEEDED AT ONSET OF MIGRAINE. MAX 1 TAB PER 24 HOUR)
     Route: 048

REACTIONS (2)
  - Drug ineffective [Unknown]
  - Off label use [Unknown]
